FAERS Safety Report 17463484 (Version 1)
Quarter: 2020Q1

REPORT INFORMATION
  Report Type: Spontaneous
  Country: US (occurrence: US)
  Receive Date: 20200226
  Receipt Date: 20200226
  Transmission Date: 20200409
  Serious: No
  Sender: FDA-Public Use
  Company Number: US-TEVA-2020-US-1191193

PATIENT
  Sex: Female

DRUGS (2)
  1. COPAXONE [Suspect]
     Active Substance: GLATIRAMER ACETATE
     Dosage: FORM STRENGTH: UNKNOWN
     Route: 065
  2. ERYTHROMYCIN. [Concomitant]
     Active Substance: ERYTHROMYCIN

REACTIONS (8)
  - Injection site discomfort [Unknown]
  - Injection site pruritus [Unknown]
  - Dyspnoea [Unknown]
  - Muscle spasms [Unknown]
  - Injection site urticaria [Unknown]
  - Injection site erythema [Unknown]
  - Injection site streaking [Unknown]
  - Tooth loss [Unknown]
